FAERS Safety Report 11785991 (Version 3)
Quarter: 2016Q1

REPORT INFORMATION
  Report Type: Spontaneous
  Country: JP (occurrence: JP)
  Receive Date: 20151130
  Receipt Date: 20160201
  Transmission Date: 20160525
  Serious: Yes (Life-Threatening, Other)
  Sender: FDA-Public Use
  Company Number: JP-BAXTER-2015BAX063735

PATIENT
  Age: 31 Year
  Sex: Male

DRUGS (27)
  1. IFEX [Suspect]
     Active Substance: IFOSFAMIDE
     Indication: SEMINOMA
     Dosage: 4 COURSES
     Route: 065
     Dates: start: 200806
  2. CISPLATIN. [Suspect]
     Active Substance: CISPLATIN
     Route: 065
     Dates: start: 20100318, end: 201010
  3. NEDAPLATIN [Concomitant]
     Active Substance: NEDAPLATIN
     Indication: TESTICULAR YOLK SAC TUMOUR STAGE III
     Dosage: 100 UNITS NOT REPORTED PER DAY
     Route: 065
     Dates: start: 20090128
  4. BLEOMYCIN HYDROCHLORIDE [Concomitant]
     Active Substance: BLEOMYCIN HYDROCHLORIDE
     Indication: TESTICULAR YOLK SAC TUMOUR STAGE III
  5. GEMZAR [Concomitant]
     Active Substance: GEMCITABINE HYDROCHLORIDE
     Indication: TESTICULAR YOLK SAC TUMOUR STAGE III
  6. CELLTOP 25 MG, CAPSULE [Suspect]
     Active Substance: ETOPOSIDE
     Indication: TESTICULAR YOLK SAC TUMOUR STAGE III
     Route: 065
  7. CISPLATIN. [Suspect]
     Active Substance: CISPLATIN
     Route: 065
     Dates: start: 20090610
  8. PACLITAXEL. [Concomitant]
     Active Substance: PACLITAXEL
     Indication: TESTICULAR YOLK SAC TUMOUR STAGE III
     Route: 065
     Dates: start: 20081013
  9. CISPLATIN. [Suspect]
     Active Substance: CISPLATIN
     Indication: TESTICULAR YOLK SAC TUMOUR STAGE III
     Dosage: 4 COURSES
     Route: 065
  10. NEDAPLATIN [Concomitant]
     Active Substance: NEDAPLATIN
     Indication: SEMINOMA
     Route: 065
     Dates: start: 20081013
  11. BLEOMYCIN HYDROCHLORIDE [Concomitant]
     Active Substance: BLEOMYCIN HYDROCHLORIDE
     Indication: SEMINOMA
     Dosage: 2 COURSES
     Route: 065
     Dates: start: 200804, end: 200808
  12. IRINOTECAN HYDROCHLORIDE HYDRATE [Concomitant]
     Active Substance: IRINOTECAN HYDROCHLORIDE
     Indication: SEMINOMA
     Route: 065
     Dates: start: 20090128, end: 201002
  13. NEDAPLATIN [Concomitant]
     Active Substance: NEDAPLATIN
     Route: 065
     Dates: start: 20090511
  14. PACLITAXEL. [Concomitant]
     Active Substance: PACLITAXEL
     Route: 065
     Dates: start: 20090511
  15. IFEX [Suspect]
     Active Substance: IFOSFAMIDE
     Dosage: 2000 MG/BODY
     Route: 065
     Dates: start: 20090511, end: 200906
  16. CARBOPLATIN. [Suspect]
     Active Substance: CARBOPLATIN
     Indication: TESTICULAR YOLK SAC TUMOUR STAGE III
  17. VINBLASTINE SULFATE. [Concomitant]
     Active Substance: VINBLASTINE SULFATE
     Indication: SEMINOMA
     Dosage: 4 COURSES
     Route: 065
  18. PACLITAXEL. [Concomitant]
     Active Substance: PACLITAXEL
     Route: 065
     Dates: start: 20100318, end: 201010
  19. CELLTOP 25 MG, CAPSULE [Suspect]
     Active Substance: ETOPOSIDE
     Indication: SEMINOMA
     Dosage: 2 COURSES
     Route: 065
     Dates: start: 200804, end: 200901
  20. IFEX [Suspect]
     Active Substance: IFOSFAMIDE
     Indication: TESTICULAR YOLK SAC TUMOUR STAGE III
     Dosage: HIGH DOSE
     Route: 065
  21. CISPLATIN. [Suspect]
     Active Substance: CISPLATIN
     Indication: SEMINOMA
     Dosage: 2 COURSES
     Route: 065
     Dates: start: 200804
  22. CARBOPLATIN. [Suspect]
     Active Substance: CARBOPLATIN
     Indication: SEMINOMA
     Route: 065
     Dates: start: 200812
  23. VINBLASTINE SULFATE. [Concomitant]
     Active Substance: VINBLASTINE SULFATE
     Indication: TESTICULAR YOLK SAC TUMOUR STAGE III
  24. IRINOTECAN HYDROCHLORIDE HYDRATE [Concomitant]
     Active Substance: IRINOTECAN HYDROCHLORIDE
     Indication: TESTICULAR YOLK SAC TUMOUR STAGE III
     Route: 065
     Dates: start: 20090610
  25. IRINOTECAN HYDROCHLORIDE HYDRATE [Concomitant]
     Active Substance: IRINOTECAN HYDROCHLORIDE
     Dosage: 8TH COURSE
     Route: 065
     Dates: start: 20100113
  26. PACLITAXEL. [Concomitant]
     Active Substance: PACLITAXEL
     Indication: SEMINOMA
     Route: 065
     Dates: start: 20081003
  27. GEMZAR [Concomitant]
     Active Substance: GEMCITABINE HYDROCHLORIDE
     Indication: SEMINOMA
     Route: 065
     Dates: start: 20100318, end: 201010

REACTIONS (3)
  - Hepatic function abnormal [Unknown]
  - Myelodysplastic syndrome [Unknown]
  - Tumour marker increased [Unknown]

NARRATIVE: CASE EVENT DATE: 20131028
